FAERS Safety Report 8007728-5 (Version None)
Quarter: 2011Q4

REPORT INFORMATION
  Report Type: 
  Country: None (occurrence: None)
  Receive Date: 20111227
  Receipt Date: 20111122
  Transmission Date: 20120403
  Serious: No
  Sender: FDA-Public Use
  Company Number: US-ABBOTT-11P-163-0877225-00

PATIENT
  Sex: Male
  Weight: 89.438 kg

DRUGS (10)
  1. LUPRON DEPOT [Suspect]
     Dosage: DEPENDENT ON LAB RESULTS
     Dates: start: 20111101
  2. LEVITRA [Concomitant]
     Indication: PRODUCT USED FOR UNKNOWN INDICATION
  3. ACETAMINOPHEN [Concomitant]
     Indication: PRODUCT USED FOR UNKNOWN INDICATION
  4. NORVASC [Concomitant]
     Indication: HYPERTENSION
  5. DOXAZOSIN MESYLATE [Concomitant]
     Indication: URINE FLOW DECREASED
  6. LUPRON DEPOT [Suspect]
     Dosage: DEPENDENT ON LAB RESULTS
     Dates: start: 20110801, end: 20110801
  7. LUPRON DEPOT [Suspect]
     Dosage: DEPENDENT ON LAB RESULTS
     Dates: start: 20110401, end: 20110401
  8. LUPRON DEPOT [Suspect]
     Indication: PROSTATE CANCER
     Dosage: DEPENDENT ON LAB RESULTS
     Dates: start: 20110128
  9. BICALUTAMIDE [Concomitant]
     Indication: PROSTATE CANCER
  10. ATENOLOL [Concomitant]
     Indication: HYPERTENSION

REACTIONS (3)
  - INJECTION SITE PAIN [None]
  - INJECTION SITE INDURATION [None]
  - INJECTION SITE ABSCESS [None]
